FAERS Safety Report 18707215 (Version 1)
Quarter: 2021Q1

REPORT INFORMATION
  Report Type: Spontaneous
  Country: US (occurrence: US)
  Receive Date: 20210106
  Receipt Date: 20210106
  Transmission Date: 20210419
  Serious: No
  Sender: FDA-Public Use
  Company Number: US-OPTINOSE US, INC-2020OPT000808

PATIENT
  Age: 76 Year
  Sex: Male

DRUGS (1)
  1. XHANCE [Suspect]
     Active Substance: FLUTICASONE PROPIONATE
     Indication: NASAL POLYPS
     Route: 045
     Dates: start: 20200810, end: 20201203

REACTIONS (4)
  - Drug delivery system issue [Recovered/Resolved]
  - Sneezing [Recovered/Resolved]
  - Drug ineffective [Recovered/Resolved]
  - Nasal discomfort [Recovered/Resolved]

NARRATIVE: CASE EVENT DATE: 20200815
